FAERS Safety Report 11404415 (Version 2)
Quarter: 2015Q4

REPORT INFORMATION
  Report Type: Spontaneous
  Country: MX (occurrence: MX)
  Receive Date: 20150821
  Receipt Date: 20151023
  Transmission Date: 20160304
  Serious: Yes (Death, Other)
  Sender: FDA-Public Use
  Company Number: MX-HORIZON-ACT-0144-2015

PATIENT
  Age: 1 Year
  Sex: Male
  Weight: 11.3 kg

DRUGS (1)
  1. IMUKIN [Suspect]
     Active Substance: INTERFERON GAMMA
     Indication: CHRONIC GRANULOMATOUS DISEASE
     Dosage: 30 ?G ONCE DAILY
     Route: 058
     Dates: start: 201406, end: 201507

REACTIONS (3)
  - Bone marrow failure [Fatal]
  - Pulmonary haemorrhage [Fatal]
  - Sepsis [Fatal]

NARRATIVE: CASE EVENT DATE: 201505
